FAERS Safety Report 9284446 (Version 3)
Quarter: 2013Q4

REPORT INFORMATION
  Report Type: Spontaneous
  Country: US (occurrence: US)
  Receive Date: 20130510
  Receipt Date: 20131125
  Transmission Date: 20140711
  Serious: Yes (Death, Life-Threatening, Hospitalization, Other)
  Sender: FDA-Public Use
  Company Number: US-TARO-2013P1005473

PATIENT
  Age: 72 Year
  Sex: Male

DRUGS (4)
  1. PLACEBO [Suspect]
     Indication: ACTINIC KERATOSIS
     Route: 061
     Dates: start: 20130131, end: 20130213
  2. CRESTOR [Concomitant]
     Route: 048
     Dates: start: 2007
  3. DIOVAN [Concomitant]
     Indication: HYPERTENSION
     Route: 048
     Dates: start: 2008
  4. METFORMIN [Concomitant]
     Route: 048
     Dates: start: 201203

REACTIONS (5)
  - Hepatitis B [Not Recovered/Not Resolved]
  - Haemochromatosis [Not Recovered/Not Resolved]
  - Hepatic cirrhosis [Not Recovered/Not Resolved]
  - Liver disorder [Not Recovered/Not Resolved]
  - Complications of transplanted liver [Fatal]
